FAERS Safety Report 21390479 (Version 1)
Quarter: 2022Q3

REPORT INFORMATION
  Report Type: Other
  Country: GB (occurrence: GB)
  Receive Date: 20220929
  Receipt Date: 20220929
  Transmission Date: 20221027
  Serious: Yes (Hospitalization)
  Sender: FDA-Public Use
  Company Number: None

PATIENT
  Age: 74 Year
  Sex: Female

DRUGS (7)
  1. IBUPROFEN [Suspect]
     Active Substance: IBUPROFEN
     Indication: Back pain
     Dosage: 1.6 GRAM, BID; REGULARLY; (3.2 GRAM; PER DAY); (MODIFIED-RELEASE TABLETS); (1 -2 PER DAY AS REQUIRED
     Route: 065
  2. IBUPROFEN [Suspect]
     Active Substance: IBUPROFEN
     Indication: Osteoarthritis
  3. BECLOMETHASONE\FORMOTEROL [Concomitant]
     Active Substance: BECLOMETHASONE\FORMOTEROL
     Indication: Product used for unknown indication
     Dosage: 4 DOSAGE FORM; PER DAY; (100MICROGRAMS/DOSE/6MICROGRAMS/DOSE INHALER TWO PUFFS TO BE INHALED TWICE A
  4. BUPRENORPHINE [Concomitant]
     Active Substance: BUPRENORPHINE
     Indication: Product used for unknown indication
     Dosage: 5 MICROGRAM
     Route: 062
  5. LANSOPRAZOLE [Concomitant]
     Active Substance: LANSOPRAZOLE
     Indication: Product used for unknown indication
     Dosage: 30 MILLIGRAM; PER DAY; (ONE DAILY ONLY IF TAKES IBUPROFEN)
     Route: 065
  6. VENTOLIN [Concomitant]
     Active Substance: ALBUTEROL SULFATE
     Indication: Product used for unknown indication
     Dosage: UNK; (100MICROGRAMS/DOSE EVOHALER ONE OR TWO PUFFS TO BE INHALED UP TO FOUR TIMES A DAY - PRN)
  7. SPIRIVA [Concomitant]
     Active Substance: TIOTROPIUM BROMIDE MONOHYDRATE
     Indication: Product used for unknown indication
     Dosage: 5 MICROGRAM; PER DAY; (2.5MICROGRAMS/DOSE INHALATION SOLUTION CARTRIDGE WITHDEVICE TWO PUFFS TO BE I

REACTIONS (3)
  - Muscular weakness [Unknown]
  - Transient ischaemic attack [Recovered/Resolved]
  - Overdose [Unknown]
